FAERS Safety Report 12476378 (Version 3)
Quarter: 2019Q3

REPORT INFORMATION
  Report Type: Report from Study
  Country: KR (occurrence: KR)
  Receive Date: 20160617
  Receipt Date: 20190829
  Transmission Date: 20191004
  Serious: Yes (Hospitalization)
  Sender: FDA-Public Use
  Company Number: KR-PFIZER INC-2015283231

PATIENT
  Age: 62 Year
  Sex: Male
  Weight: 68.5 kg

DRUGS (30)
  1. CRIZOTINIB [Suspect]
     Active Substance: CRIZOTINIB
     Dosage: UNK, CYCLIC
     Dates: start: 20151230, end: 20160223
  2. DIAMICRON MR [Concomitant]
     Active Substance: GLICLAZIDE
     Indication: DIABETES MELLITUS
     Dosage: 30 MG, 1X/DAY
     Route: 048
     Dates: start: 20141008
  3. CRIZOTINIB [Suspect]
     Active Substance: CRIZOTINIB
     Dosage: 250 MG, DAILY
     Dates: start: 20150226, end: 20150821
  4. CRIZOTINIB [Suspect]
     Active Substance: CRIZOTINIB
     Dosage: UNK, CYCLIC (CYCLE 1, DAY 1)
     Dates: start: 20140716, end: 20140729
  5. CRIZOTINIB [Suspect]
     Active Substance: CRIZOTINIB
     Dosage: UNK, CYCLIC (CYCLE 5, DAY 1)
     Dates: start: 20141105, end: 20141202
  6. CRIZOTINIB [Suspect]
     Active Substance: CRIZOTINIB
     Dosage: UNK, CYCLIC (DOSE REDUCED)
     Dates: start: 20150225, end: 20150324
  7. CRIZOTINIB [Suspect]
     Active Substance: CRIZOTINIB
     Dosage: UNK, CYCLIC
     Dates: start: 20150715, end: 20150821
  8. CRIZOTINIB [Suspect]
     Active Substance: CRIZOTINIB
     Dosage: UNK, CYCLIC
     Dates: start: 20150911, end: 20151103
  9. CRIZOTINIB [Suspect]
     Active Substance: CRIZOTINIB
     Dosage: UNK, CYCLIC
     Dates: start: 20151104, end: 20151229
  10. CRIZOTINIB [Suspect]
     Active Substance: CRIZOTINIB
     Dosage: UNK, CYCLIC
     Dates: start: 20160810, end: 20161004
  11. CRIZOTINIB [Suspect]
     Active Substance: CRIZOTINIB
     Dosage: UNK, CYCLIC (CYCLE 3, DAY 1)
     Dates: start: 20140912, end: 20141007
  12. CRIZOTINIB [Suspect]
     Active Substance: CRIZOTINIB
     Dosage: UNK, CYCLIC
     Dates: start: 20150826, end: 20150910
  13. CRIZOTINIB [Suspect]
     Active Substance: CRIZOTINIB
     Dosage: 200 MG, 2X/DAY
     Dates: start: 20150128, end: 20150225
  14. CRIZOTINIB [Suspect]
     Active Substance: CRIZOTINIB
     Dosage: UNK, CYCLIC
     Dates: start: 20161130, end: 20170124
  15. CRIZOTINIB [Suspect]
     Active Substance: CRIZOTINIB
     Dosage: UNK, CYCLIC
     Dates: start: 20170125, end: 20170323
  16. TRENTAL [Concomitant]
     Active Substance: PENTOXIFYLLINE
     Indication: OCULAR VASCULAR DISORDER
     Dosage: 400 MG, 2X/DAY
     Route: 048
     Dates: start: 20141105
  17. CRIZOTINIB [Suspect]
     Active Substance: CRIZOTINIB
     Indication: NON-SMALL CELL LUNG CANCER
     Dosage: 250 MG, 2X/DAY
     Dates: start: 20140716, end: 20150127
  18. CRIZOTINIB [Suspect]
     Active Substance: CRIZOTINIB
     Dosage: UNK, CYCLIC (CYCLE 2, DAY 1)
     Dates: start: 20140813, end: 20140911
  19. CRIZOTINIB [Suspect]
     Active Substance: CRIZOTINIB
     Dosage: UNK, CYCLIC (CYCLE 6, DAY 1)
     Dates: start: 20141203, end: 20141230
  20. CRIZOTINIB [Suspect]
     Active Substance: CRIZOTINIB
     Dosage: UNK, CYCLIC (CYCLE 7, DAY 1)
     Dates: start: 20141231, end: 20150127
  21. CRIZOTINIB [Suspect]
     Active Substance: CRIZOTINIB
     Dosage: UNK, CYCLIC
     Dates: start: 20150325, end: 20150520
  22. CRIZOTINIB [Suspect]
     Active Substance: CRIZOTINIB
     Dosage: UNK, CYCLIC (CYCLE 4, DAY 1)
     Dates: start: 20141008, end: 20141104
  23. CRIZOTINIB [Suspect]
     Active Substance: CRIZOTINIB
     Dosage: UNK, CYCLIC (CYCLE 8, DAY 1)
     Dates: start: 20150128, end: 20150225
  24. CRIZOTINIB [Suspect]
     Active Substance: CRIZOTINIB
     Dosage: UNK, CYCLIC
     Dates: start: 20150520, end: 20150714
  25. CRIZOTINIB [Suspect]
     Active Substance: CRIZOTINIB
     Dosage: UNK, CYCLIC
     Dates: start: 20160224, end: 20160420
  26. CRIZOTINIB [Suspect]
     Active Substance: CRIZOTINIB
     Dosage: UNK, CYCLIC (CYCLE 1, DAY 15)
     Dates: start: 20140730, end: 20140812
  27. CRIZOTINIB [Suspect]
     Active Substance: CRIZOTINIB
     Dosage: UNK, CYCLIC
     Dates: start: 20160421, end: 20160616
  28. CRIZOTINIB [Suspect]
     Active Substance: CRIZOTINIB
     Dosage: UNK, CYCLIC
     Dates: start: 20160617, end: 20160809
  29. CRIZOTINIB [Suspect]
     Active Substance: CRIZOTINIB
     Dosage: UNK, CYCLIC
     Dates: start: 20161005, end: 20161129
  30. CRIZOTINIB [Suspect]
     Active Substance: CRIZOTINIB
     Dosage: UNK, CYCLIC
     Dates: start: 20170324, end: 20170418

REACTIONS (1)
  - Retinal detachment [Recovered/Resolved]

NARRATIVE: CASE EVENT DATE: 20150821
